FAERS Safety Report 4355995-1 (Version None)
Quarter: 2004Q2

REPORT INFORMATION
  Report Type: 
  Country: None (occurrence: None)
  Receive Date: 20040511
  Receipt Date: 20040429
  Transmission Date: 20050107
  Serious: Yes (Hospitalization)
  Sender: FDA-Public Use
  Company Number: NL-AMGEN-US075136

PATIENT
  Sex: Female
  Weight: 74 kg

DRUGS (2)
  1. ETANERCEPT - BLINDED [Suspect]
     Indication: RHEUMATOID ARTHRITIS
     Dates: start: 20010604, end: 20040429
  2. METHOTREXATE [Suspect]

REACTIONS (2)
  - LUNG INFILTRATION [None]
  - PRODUCTIVE COUGH [None]
